FAERS Safety Report 21053104 (Version 2)
Quarter: 2022Q3

REPORT INFORMATION
  Report Type: Spontaneous
  Country: US (occurrence: US)
  Receive Date: 20220707
  Receipt Date: 20220729
  Transmission Date: 20221026
  Serious: Yes (Hospitalization, Other)
  Sender: FDA-Public Use
  Company Number: US-UNITED THERAPEUTICS-UNT-2022-013612

PATIENT
  Age: 57 Year
  Sex: Female

DRUGS (2)
  1. REMODULIN [Suspect]
     Active Substance: TREPROSTINIL
     Indication: Pulmonary arterial hypertension
     Dosage: UNK, CONTINUING
     Route: 041
     Dates: start: 20210128
  2. REMODULIN [Suspect]
     Active Substance: TREPROSTINIL
     Dosage: 0.079 ?G/KG, CONTINUING (PUMP RATE 41 ML/24HR)
     Route: 041

REACTIONS (4)
  - Injection site cellulitis [Unknown]
  - Device occlusion [Recovered/Resolved]
  - Vascular device infection [Unknown]
  - Device malfunction [Unknown]

NARRATIVE: CASE EVENT DATE: 20220620
